FAERS Safety Report 18764209 (Version 2)
Quarter: 2021Q1

REPORT INFORMATION
  Report Type: Report from Study
  Country: IT (occurrence: IT)
  Receive Date: 20210120
  Receipt Date: 20210211
  Transmission Date: 20210419
  Serious: Yes (Other)
  Sender: FDA-Public Use
  Company Number: IT-JNJFOC-20210127179

PATIENT

DRUGS (3)
  1. REMICADE [Suspect]
     Active Substance: INFLIXIMAB
     Indication: COLITIS ULCERATIVE
  2. REMICADE [Suspect]
     Active Substance: INFLIXIMAB
     Indication: COLITIS
  3. REMICADE [Suspect]
     Active Substance: INFLIXIMAB
     Indication: CROHN^S DISEASE
     Route: 042

REACTIONS (21)
  - Malignant melanoma [Unknown]
  - Urinary tract infection [Unknown]
  - Drug specific antibody present [Unknown]
  - Clostridium difficile colitis [Unknown]
  - Antinuclear antibody positive [Unknown]
  - Rhinitis [Unknown]
  - Urticaria chronic [Unknown]
  - Oral herpes [Unknown]
  - Serum sickness [Unknown]
  - Exanthema subitum [Unknown]
  - Pneumonia [Unknown]
  - Salmonellosis [Unknown]
  - Dermatitis psoriasiform [Unknown]
  - Adverse event [Unknown]
  - Coronavirus test positive [Unknown]
  - Sinusitis [Unknown]
  - Hypertransaminasaemia [Unknown]
  - Genital infection [Unknown]
  - Folliculitis [Unknown]
  - Pharyngotonsillitis [Unknown]
  - Varicella zoster virus infection [Unknown]
